FAERS Safety Report 6215179-9 (Version None)
Quarter: 2009Q2

REPORT INFORMATION
  Report Type: 
  Country: None (occurrence: None)
  Receive Date: 20090604
  Receipt Date: 20090521
  Transmission Date: 20091009
  Serious: Yes (Life-Threatening)
  Sender: FDA-Public Use
  Company Number: NZ-MYLANLABS-2009S1008998

PATIENT
  Age: 24 Year
  Sex: Male

DRUGS (5)
  1. BACLOFEN [Suspect]
     Indication: DRUG USE FOR UNKNOWN INDICATION
     Route: 048
     Dates: start: 19990101, end: 20071113
  2. OMEPRAZOLE [Concomitant]
     Indication: GASTROOESOPHAGEAL REFLUX DISEASE
     Route: 048
  3. TETRABENAZINE [Concomitant]
     Indication: CEREBRAL PALSY
     Route: 048
     Dates: start: 20071113, end: 20071117
  4. ALBUTEROL [Concomitant]
     Indication: DRUG USE FOR UNKNOWN INDICATION
     Route: 055
  5. DIAZEPAM [Concomitant]
     Indication: DRUG USE FOR UNKNOWN INDICATION
     Route: 048
     Dates: start: 20071112, end: 20071113

REACTIONS (2)
  - DRUG WITHDRAWAL SYNDROME [None]
  - MEDICATION ERROR [None]
